FAERS Safety Report 10065371 (Version 4)
Quarter: 2015Q2

REPORT INFORMATION
  Report Type: Spontaneous
  Country: US (occurrence: US)
  Receive Date: 20140408
  Receipt Date: 20150617
  Transmission Date: 20150821
  Serious: Yes (Hospitalization, Other)
  Sender: FDA-Public Use
  Company Number: US-009507513-1404USA004095

PATIENT
  Sex: Male
  Weight: 166.44 kg

DRUGS (1)
  1. JANUVIA [Suspect]
     Active Substance: SITAGLIPTIN PHOSPHATE
     Indication: TYPE 2 DIABETES MELLITUS
     Dosage: 100 MG, QD
     Route: 048
     Dates: start: 20101014, end: 20130409

REACTIONS (43)
  - Pancreatic cyst [Unknown]
  - Cardiac murmur [Unknown]
  - Blood triglycerides increased [Unknown]
  - Hypertension [Unknown]
  - Helicobacter infection [Unknown]
  - Appendicectomy [Unknown]
  - Dyspnoea [Unknown]
  - Fat necrosis [Recovering/Resolving]
  - Osteoarthritis [Unknown]
  - Nocturia [Unknown]
  - Pancreaticoduodenectomy [Recovered/Resolved]
  - Metastases to lymph nodes [Unknown]
  - Arthropathy [Unknown]
  - Rhonchi [Unknown]
  - Pancreatitis chronic [Not Recovered/Not Resolved]
  - Abdominal pain upper [Unknown]
  - Atrophy [Unknown]
  - Malnutrition [Unknown]
  - Blood alkaline phosphatase increased [Unknown]
  - Blood albumin decreased [Unknown]
  - Abnormal loss of weight [Unknown]
  - Mental status changes [Unknown]
  - Gingivitis [Unknown]
  - Chronic obstructive pulmonary disease [Not Recovered/Not Resolved]
  - Increased tendency to bruise [Unknown]
  - Postoperative wound complication [Unknown]
  - Abdominal adhesions [Unknown]
  - Hepatic cancer [Unknown]
  - Dehydration [Unknown]
  - Deafness [Unknown]
  - Cholelithiasis [Unknown]
  - Hypercholesterolaemia [Unknown]
  - Gastrooesophageal reflux disease [Unknown]
  - Osteoarthritis [Unknown]
  - Sleep apnoea syndrome [Unknown]
  - Adenocarcinoma pancreas [Unknown]
  - Bronchitis [Recovering/Resolving]
  - Gastric ulcer [Unknown]
  - Obesity [Recovered/Resolved]
  - Chest discomfort [Unknown]
  - Spinal compression fracture [Unknown]
  - Hyperlipidaemia [Unknown]
  - Bile duct stent insertion [Unknown]

NARRATIVE: CASE EVENT DATE: 2012
